FAERS Safety Report 4978163-9 (Version None)
Quarter: 2006Q2

REPORT INFORMATION
  Report Type: 
  Country: None (occurrence: None)
  Receive Date: 20060420
  Receipt Date: 20060407
  Transmission Date: 20061013
  Serious: Yes (Life-Threatening, Hospitalization)
  Sender: FDA-Public Use
  Company Number: FR-ROCHE-443828

PATIENT
  Age: 69 Year
  Sex: Male
  Weight: 55 kg

DRUGS (7)
  1. VESANOID [Suspect]
     Route: 048
     Dates: start: 20050912, end: 20050926
  2. VESANOID [Suspect]
     Route: 048
     Dates: start: 20051212, end: 20051225
  3. VESANOID [Suspect]
     Route: 048
     Dates: start: 20060206, end: 20060219
  4. DAUNORUBICIN HCL [Concomitant]
  5. ARACYTINE [Concomitant]
  6. PURINETHOL [Concomitant]
  7. METHOTREXATE [Concomitant]

REACTIONS (4)
  - COMA [None]
  - HYPERGLYCAEMIA [None]
  - HYPERNATRAEMIA [None]
  - PYREXIA [None]
